FAERS Safety Report 5157979-2 (Version None)
Quarter: 2006Q4

REPORT INFORMATION
  Report Type: 
  Country: None (occurrence: None)
  Receive Date: 20061127
  Receipt Date: 20061120
  Transmission Date: 20070319
  Serious: Yes (Hospitalization)
  Sender: FDA-Public Use
  Company Number: DE-BOEHRINGER INGELHEIM PHARMACEUTICALS, INC.-2006-DE-06137DE

PATIENT
  Sex: Male

DRUGS (7)
  1. SIFROL [Suspect]
     Route: 048
  2. AMITRIPTYLIN [Suspect]
     Route: 048
  3. MELLARIL [Suspect]
     Route: 048
  4. MELPERON [Suspect]
     Route: 048
  5. VALPROATE SODIUM [Suspect]
     Route: 048
  6. SEROQUEL [Suspect]
     Route: 048
  7. TOPAMAX [Suspect]
     Route: 048

REACTIONS (3)
  - DRUG ABUSER [None]
  - SOMNOLENCE [None]
  - SUICIDE ATTEMPT [None]
